FAERS Safety Report 16751220 (Version 1)
Quarter: 2019Q3

REPORT INFORMATION
  Report Type: Spontaneous
  Country: US (occurrence: US)
  Receive Date: 20190828
  Receipt Date: 20190828
  Transmission Date: 20191005
  Serious: Yes (Other)
  Sender: FDA-Public Use
  Company Number: US-BAYER-2019-156652

PATIENT
  Age: 52 Year
  Sex: Male
  Weight: 77 kg

DRUGS (11)
  1. RISANKIZUMAB [Suspect]
     Active Substance: RISANKIZUMAB
     Indication: PSORIASIS
     Dosage: 2 DF
     Route: 058
     Dates: start: 20190816
  2. METFORMIN [Concomitant]
     Active Substance: METFORMIN HYDROCHLORIDE
     Indication: DIABETES MELLITUS
     Dosage: UNK
  3. FISH OIL [Concomitant]
     Active Substance: FISH OIL
  4. GENUINE BAYER ASPIRIN [Suspect]
     Active Substance: ASPIRIN
     Indication: THROMBOSIS PROPHYLAXIS
     Dosage: 325 MG, QD
     Route: 048
     Dates: end: 20190720
  5. ATORVASTATIN [Concomitant]
     Active Substance: ATORVASTATIN
     Indication: BLOOD CHOLESTEROL INCREASED
     Dosage: UNK
  6. LOSARTAN. [Concomitant]
     Active Substance: LOSARTAN
     Indication: HYPERTENSION
     Dosage: UNK
  7. GENUINE BAYER ASPIRIN [Suspect]
     Active Substance: ASPIRIN
     Indication: THROMBOSIS PROPHYLAXIS
     Dosage: 81 MG, QD
     Route: 048
     Dates: start: 20190720
  8. RISANKIZUMAB [Suspect]
     Active Substance: RISANKIZUMAB
     Indication: PSORIASIS
     Dosage: 2 DF
     Route: 058
     Dates: start: 20190717, end: 20190717
  9. TOUJEO [Concomitant]
     Active Substance: INSULIN GLARGINE
     Indication: DIABETES MELLITUS
     Dosage: UNK
  10. NOVOLOG [Concomitant]
     Active Substance: INSULIN ASPART
     Indication: DIABETES MELLITUS
     Dosage: UNK
  11. METOPROLOL. [Concomitant]
     Active Substance: METOPROLOL
     Indication: HYPERTENSION
     Dosage: UNK

REACTIONS (1)
  - Gastrointestinal haemorrhage [Recovered/Resolved]

NARRATIVE: CASE EVENT DATE: 201908
